FAERS Safety Report 4583509-X (Version None)
Quarter: 2005Q1

REPORT INFORMATION
  Report Type: 
  Country: None (occurrence: None)
  Receive Date: 20050211
  Receipt Date: 20050131
  Transmission Date: 20050727
  Serious: Yes (Other)
  Sender: FDA-Public Use
  Company Number: 2005024255

PATIENT
  Sex: Male

DRUGS (1)
  1. DEPO-TESTOSTERONE [Suspect]
     Indication: HYPOGONADISM
     Dosage: 300 MG (CYCLIC INTERVAL: EVERY 10 DAY), INTRAMUSCULAR)
     Route: 030

REACTIONS (2)
  - ARTHRALGIA [None]
  - CONDITION AGGRAVATED [None]
